FAERS Safety Report 21044904 (Version 1)
Quarter: 2022Q3

REPORT INFORMATION
  Report Type: Spontaneous
  Country: US (occurrence: US)
  Receive Date: 20220705
  Receipt Date: 20220705
  Transmission Date: 20221027
  Serious: No
  Sender: FDA-Public Use
  Company Number: US-UPSHER-SMITH LABORATORIES, LLC-2021USL00876

PATIENT
  Sex: Male

DRUGS (2)
  1. TESTOSTERONE [Suspect]
     Active Substance: TESTOSTERONE
     Indication: Fatigue
     Dosage: 37.5 MG (3 PUMPS), 1X/DAY TO EACH SHOULDER AND UPPER ARM
     Route: 061
     Dates: start: 20211012, end: 202111
  2. TESTOSTERONE [Suspect]
     Active Substance: TESTOSTERONE
     Indication: Asthenia
     Dosage: 50 MG (4 PUMPS), 1X/DAY TO EACH SHOULDER AND UPPER ARM
     Route: 061
     Dates: start: 202111

REACTIONS (3)
  - Discomfort [Unknown]
  - Blood testosterone decreased [Unknown]
  - Drug ineffective for unapproved indication [Not Recovered/Not Resolved]

NARRATIVE: CASE EVENT DATE: 20210101
